FAERS Safety Report 8386348-7 (Version None)
Quarter: 2012Q2

REPORT INFORMATION
  Report Type: 
  Country: None (occurrence: None)
  Receive Date: 20120523
  Receipt Date: 20120515
  Transmission Date: 20120825
  Serious: Yes (Hospitalization, Other)
  Sender: FDA-Public Use
  Company Number: FK201201393

PATIENT
  Age: 45 Year
  Sex: Female

DRUGS (2)
  1. DOXYCYCLINE [Suspect]
     Indication: SYSTEMIC LUPUS ERYTHEMATOSUS
  2. CIPROFLOXACIN [Suspect]
     Indication: SYSTEMIC LUPUS ERYTHEMATOSUS

REACTIONS (5)
  - RENAL DISORDER [None]
  - NERVOUS SYSTEM DISORDER [None]
  - PANCREATIC DISORDER [None]
  - VASCULITIS [None]
  - STEVENS-JOHNSON SYNDROME [None]
